FAERS Safety Report 20210788 (Version 1)
Quarter: 2021Q4

REPORT INFORMATION
  Report Type: Spontaneous
  Country: PL (occurrence: PL)
  Receive Date: 20211221
  Receipt Date: 20211221
  Transmission Date: 20220303
  Serious: Yes (Other)
  Sender: FDA-Public Use
  Company Number: PL-NOVARTISPH-NVSC2021PL283694

PATIENT
  Age: 35 Year
  Sex: Female

DRUGS (4)
  1. METHOTREXATE [Suspect]
     Active Substance: METHOTREXATE
     Indication: Psoriatic arthropathy
     Dosage: 22.5 MG, QW
     Route: 048
     Dates: start: 20200511
  2. METHOTREXATE [Suspect]
     Active Substance: METHOTREXATE
     Dosage: 20 UNK
     Route: 058
     Dates: start: 20201214
  3. METHOTREXATE [Suspect]
     Active Substance: METHOTREXATE
     Dosage: 15 UNK
     Route: 058
     Dates: start: 202103
  4. METEX [Concomitant]
     Indication: Product used for unknown indication
     Dosage: 15 MG, QW
     Route: 065

REACTIONS (10)
  - Uveitis [Unknown]
  - Leukopenia [Unknown]
  - Psoriatic arthropathy [Unknown]
  - Plantar fasciitis [Unknown]
  - Dactylitis [Unknown]
  - Arthralgia [Unknown]
  - Enthesopathy [Unknown]
  - Joint swelling [Unknown]
  - Tendonitis [Unknown]
  - Drug ineffective [Unknown]
